FAERS Safety Report 7328149-4 (Version None)
Quarter: 2011Q1

REPORT INFORMATION
  Report Type: 
  Country: None (occurrence: None)
  Receive Date: 20110303
  Receipt Date: 20110218
  Transmission Date: 20110831
  Serious: Yes (Other)
  Sender: FDA-Public Use
  Company Number: PHFR2010GB05084

PATIENT
  Sex: Male

DRUGS (1)
  1. CLOZARIL [Suspect]
     Dosage: 50 MG, ONCE/SINGLE
     Route: 048

REACTIONS (2)
  - SOMNOLENCE [None]
  - ACCIDENTAL EXPOSURE [None]
